FAERS Safety Report 5367845-5 (Version None)
Quarter: 2007Q2

REPORT INFORMATION
  Report Type: 
  Country: None (occurrence: None)
  Receive Date: 20070622
  Receipt Date: 20070615
  Transmission Date: 20071010
  Serious: Yes (Other)
  Sender: FDA-Public Use
  Company Number: US-AMGEN-STX225962

PATIENT
  Sex: Female
  Weight: 88.5 kg

DRUGS (2)
  1. ENBREL [Suspect]
     Indication: PSORIASIS
     Route: 058
     Dates: start: 20050512, end: 20070202
  2. METHOTREXATE [Concomitant]

REACTIONS (1)
  - MULTIPLE SCLEROSIS [None]
